FAERS Safety Report 5392114-7 (Version None)
Quarter: 2007Q3

REPORT INFORMATION
  Report Type: 
  Country: None (occurrence: None)
  Receive Date: 20070718
  Receipt Date: 20070718
  Transmission Date: 20080115
  Serious: Yes (Hospitalization)
  Sender: FDA-Public Use
  Company Number: None

PATIENT
  Age: 49 Year
  Sex: Male
  Weight: 58.9676 kg

DRUGS (1)
  1. VALPROIC ACID SYRUP [Suspect]
     Indication: BIPOLAR DISORDER
     Dosage: 500 MG AT 9 AM PO;  1000 MG AT 9 PM PO
     Route: 048
     Dates: start: 20070601, end: 20070611

REACTIONS (4)
  - AMINO ACID METABOLISM DISORDER [None]
  - DELIRIUM [None]
  - ENCEPHALOPATHY [None]
  - HYPERAMMONAEMIA [None]
